FAERS Safety Report 4331342-6 (Version None)
Quarter: 2004Q1

REPORT INFORMATION
  Report Type: 
  Country: None (occurrence: None)
  Receive Date: 20040331
  Receipt Date: 20040318
  Transmission Date: 20041129
  Serious: Yes (Hospitalization)
  Sender: FDA-Public Use
  Company Number: 2004008204

PATIENT
  Age: 77 Year
  Sex: Male
  Weight: 91 kg

DRUGS (5)
  1. VIAGRA [Suspect]
     Indication: ERECTILE DYSFUNCTION
     Dosage: 100 MG (PRN), ORAL
     Route: 048
  2. TADALAFIL [Concomitant]
  3. BENDROFLUMETHIAZIDE [Concomitant]
  4. PANTOPRAZOLE [Concomitant]
  5. IBUPROFEN [Concomitant]

REACTIONS (7)
  - ARRHYTHMIA [None]
  - CIRCULATORY COLLAPSE [None]
  - DIZZINESS POSTURAL [None]
  - FALL [None]
  - HIP FRACTURE [None]
  - ORTHOSTATIC HYPOTENSION [None]
  - PALLOR [None]
